FAERS Safety Report 14715141 (Version 1)
Quarter: 2018Q2

REPORT INFORMATION
  Report Type: Spontaneous
  Country: CA (occurrence: CA)
  Receive Date: 20180404
  Receipt Date: 20180404
  Transmission Date: 20180711
  Serious: Yes (Other)
  Sender: FDA-Public Use
  Company Number: PHHY2018CA058148

PATIENT
  Sex: Female

DRUGS (1)
  1. COSENTYX [Suspect]
     Active Substance: SECUKINUMAB
     Indication: UVEITIS
     Dosage: 12 DOSES
     Route: 065

REACTIONS (4)
  - Pre-existing condition improved [Unknown]
  - Product use in unapproved indication [Unknown]
  - Multiple sclerosis [Unknown]
  - Therapeutic response unexpected [Unknown]
